FAERS Safety Report 23649086 (Version 1)
Quarter: 2024Q1

REPORT INFORMATION
  Report Type: Spontaneous
  Country: FR (occurrence: FR)
  Receive Date: 20240319
  Receipt Date: 20240319
  Transmission Date: 20240409
  Serious: Yes (Other)
  Sender: FDA-Public Use
  Company Number: FR-PFM-2024-01178

PATIENT
  Age: 75 Year
  Sex: Male

DRUGS (2)
  1. VENETOCLAX [Suspect]
     Active Substance: VENETOCLAX
     Indication: Chronic lymphocytic leukaemia
     Dosage: UNK
     Route: 048
  2. TOLAK [Suspect]
     Active Substance: FLUOROURACIL
     Indication: Actinic keratosis
     Dosage: 1 DF PER DAY
     Route: 003
     Dates: start: 20231115, end: 20231207

REACTIONS (4)
  - Squamous cell carcinoma of skin [Not Recovered/Not Resolved]
  - Ulcer [Not Recovered/Not Resolved]
  - Scab [Not Recovered/Not Resolved]
  - Superinfection [Not Recovered/Not Resolved]

NARRATIVE: CASE EVENT DATE: 20231215
